FAERS Safety Report 18756835 (Version 1)
Quarter: 2021Q1

REPORT INFORMATION
  Report Type: Spontaneous
  Country: US (occurrence: US)
  Receive Date: 20210119
  Receipt Date: 20210119
  Transmission Date: 20210419
  Serious: No
  Sender: FDA-Public Use
  Company Number: US-PFIZER INC-2021021020

PATIENT
  Age: 39 Year
  Sex: Female

DRUGS (5)
  1. ADVIL [Suspect]
     Active Substance: IBUPROFEN
     Indication: PYREXIA
  2. ADVIL [Suspect]
     Active Substance: IBUPROFEN
     Indication: HEADACHE
     Dosage: UNK (I TAKE 4 A DAY. 8 HRS APART)
  3. ADVIL [Suspect]
     Active Substance: IBUPROFEN
     Indication: PERIPHERAL SWELLING
  4. ADVIL [Suspect]
     Active Substance: IBUPROFEN
     Indication: PAIN
  5. ADVIL [Suspect]
     Active Substance: IBUPROFEN
     Indication: EYE SWELLING

REACTIONS (3)
  - Abdominal discomfort [Unknown]
  - Muscle spasms [Unknown]
  - Drug ineffective [Unknown]
